FAERS Safety Report 7018240-4 (Version None)
Quarter: 2010Q3

REPORT INFORMATION
  Report Type: 
  Country: None (occurrence: None)
  Receive Date: 20100927
  Receipt Date: 20100927
  Transmission Date: 20110219
  Serious: Yes (Other)
  Sender: FDA-Public Use
  Company Number: None

PATIENT
  Age: 78 Year
  Sex: Female
  Weight: 113.3993 kg

DRUGS (1)
  1. PROCRIT [Suspect]
     Indication: RENAL FAILURE
     Dosage: 10,000 UNITS AS NEEDED IM
     Route: 030
     Dates: start: 20060101, end: 20100701

REACTIONS (1)
  - VENOUS INSUFFICIENCY [None]
